FAERS Safety Report 17909242 (Version 1)
Quarter: 2020Q2

REPORT INFORMATION
  Report Type: Spontaneous
  Country: CA (occurrence: CA)
  Receive Date: 20200618
  Receipt Date: 20200618
  Transmission Date: 20200714
  Serious: Yes (Death, Other)
  Sender: FDA-Public Use
  Company Number: CA-ABBVIE-20K-028-3449372-00

PATIENT
  Age: 67 Year
  Sex: Male

DRUGS (2)
  1. HUMIRA [Suspect]
     Active Substance: ADALIMUMAB
     Indication: RHEUMATOID ARTHRITIS
     Route: 058
  2. METHOTREXATE. [Suspect]
     Active Substance: METHOTREXATE
     Indication: PRODUCT USED FOR UNKNOWN INDICATION
     Route: 065

REACTIONS (8)
  - Metastases to central nervous system [Fatal]
  - Mobility decreased [Fatal]
  - Fall [Fatal]
  - Bladder neck operation [Fatal]
  - Hypoaesthesia [Fatal]
  - Neoplasm progression [Fatal]
  - Hip fracture [Fatal]
  - Cerebrovascular accident [Fatal]
